FAERS Safety Report 11373397 (Version 1)
Quarter: 2015Q3

REPORT INFORMATION
  Report Type: Spontaneous
  Country: US (occurrence: US)
  Receive Date: 20150811
  Receipt Date: 20150811
  Transmission Date: 20151125
  Serious: No
  Sender: FDA-Public Use
  Company Number: US-ELI_LILLY_AND_COMPANY-US201207008546

PATIENT
  Age: 58 Year
  Sex: Male
  Weight: 95.24 kg

DRUGS (2)
  1. CIALIS [Suspect]
     Active Substance: TADALAFIL
     Indication: ERECTILE DYSFUNCTION
     Dosage: 20 MG, PRN
     Dates: start: 201206
  2. CIALIS [Suspect]
     Active Substance: TADALAFIL
     Dosage: 5 MG, QD
     Dates: start: 201207

REACTIONS (3)
  - Nasal congestion [Recovered/Resolved]
  - Mouth breathing [Recovered/Resolved]
  - Headache [Recovered/Resolved]

NARRATIVE: CASE EVENT DATE: 201206
